FAERS Safety Report 5126067-3 (Version None)
Quarter: 2006Q4

REPORT INFORMATION
  Report Type: 
  Country: None (occurrence: None)
  Receive Date: 20061012
  Receipt Date: 20061006
  Transmission Date: 20070319
  Serious: Yes (Hospitalization)
  Sender: FDA-Public Use
  Company Number: IT-ROCHE-466113

PATIENT
  Age: 47 Year
  Sex: Male

DRUGS (1)
  1. PEGASYS [Suspect]
     Indication: HEPATITIS B
     Dosage: FORM REPORTED AS VIAL.
     Route: 058
     Dates: start: 20060617, end: 20060909

REACTIONS (3)
  - CONVULSION [None]
  - HYPERHIDROSIS [None]
  - PALLOR [None]
